FAERS Safety Report 10185698 (Version 1)
Quarter: 2014Q2

REPORT INFORMATION
  Report Type: Spontaneous
  Country: IN (occurrence: IN)
  Receive Date: 20140521
  Receipt Date: 20140521
  Transmission Date: 20141212
  Serious: Yes (Other)
  Sender: FDA-Public Use
  Company Number: IN-WATSON-2014-10092

PATIENT
  Age: 35 Year
  Sex: Male

DRUGS (1)
  1. DISULFIRAM (UNKNOWN) [Suspect]
     Indication: ALCOHOL USE
     Dosage: UNK
     Route: 048

REACTIONS (3)
  - Encephalopathy [Unknown]
  - Central nervous system lesion [Unknown]
  - Self-medication [Unknown]
